FAERS Safety Report 25018272 (Version 1)
Quarter: 2025Q1

REPORT INFORMATION
  Report Type: Spontaneous
  Country: US (occurrence: US)
  Receive Date: 20250227
  Receipt Date: 20250227
  Transmission Date: 20250409
  Serious: Yes (Other)
  Sender: PFIZER
  Company Number: US-PFIZER INC-202400322178

PATIENT
  Age: 33 Year
  Sex: Female
  Weight: 83.9 kg

DRUGS (4)
  1. BRAFTOVI [Suspect]
     Active Substance: ENCORAFENIB
     Indication: Brain neoplasm
     Dosage: 450 MG, DAILY (TAKE 6 CAPSULES BY MOUTH DAILY DAILY)
     Route: 048
  2. MEKTOVI [Suspect]
     Active Substance: BINIMETINIB
     Indication: Brain neoplasm
     Dosage: 45 MG, 2X/DAY (TAKE 3 CAPSULES BY MOUTH 2 TIMES A DAY)
     Route: 048
  3. LEVOTHYROXINE [Concomitant]
     Active Substance: LEVOTHYROXINE
     Indication: Thyroid disorder
     Dosage: 125 UG, 1X/DAY  (125 MCG ONCE A DAY BY MOUTH)
     Route: 048
     Dates: start: 201801
  4. LIOTHYRONINE SODIUM [Concomitant]
     Active Substance: LIOTHYRONINE SODIUM
     Indication: Thyroid disorder

REACTIONS (2)
  - Seizure [Unknown]
  - Off label use [Unknown]
